FAERS Safety Report 8522114-7 (Version None)
Quarter: 2012Q3

REPORT INFORMATION
  Report Type: 
  Country: None (occurrence: None)
  Receive Date: 20120719
  Receipt Date: 20120711
  Transmission Date: 20120928
  Serious: Yes (Hospitalization, Other)
  Sender: FDA-Public Use
  Company Number: DE-TEVA-348014GER

PATIENT
  Sex: Female

DRUGS (5)
  1. LEVOTHYROXINE SODIUM [Concomitant]
     Route: 064
  2. DIPIDOLOR [Suspect]
     Route: 064
  3. LEVOTHYROXIN }THYROXIN [Concomitant]
     Route: 064
  4. FENTANYL [Suspect]
     Route: 064
  5. CEFUROXIME [Concomitant]
     Route: 064

REACTIONS (3)
  - FOOT DEFORMITY [None]
  - FEEDING DISORDER NEONATAL [None]
  - NEONATAL RESPIRATORY DISTRESS SYNDROME [None]
